FAERS Safety Report 25920116 (Version 1)
Quarter: 2025Q4

REPORT INFORMATION
  Report Type: Spontaneous
  Country: US (occurrence: None)
  Receive Date: 20251014
  Receipt Date: 20251014
  Transmission Date: 20260118
  Serious: Yes (Other)
  Sender: FDA-CTU
  Company Number: None

PATIENT
  Age: 62 Year
  Sex: Male

DRUGS (3)
  1. LENALIDOMIDE [Suspect]
     Active Substance: LENALIDOMIDE
     Indication: Plasma cell myeloma
     Dosage: TAKE 1 CAPSULE BY MOUTH DAILY FOR 21 DAYS REST FOR 7 DAYS
     Route: 048
     Dates: start: 20240120
  2. ASPIRIN [Concomitant]
     Active Substance: ASPIRIN
  3. OMEPRAZOLE [Concomitant]
     Active Substance: OMEPRAZOLE

REACTIONS (2)
  - Cataract operation [None]
  - Therapy interrupted [None]

NARRATIVE: CASE EVENT DATE: 20250920
